FAERS Safety Report 10944014 (Version 4)
Quarter: 2015Q2

REPORT INFORMATION
  Report Type: Spontaneous
  Country: US (occurrence: US)
  Receive Date: 20150323
  Receipt Date: 20150420
  Transmission Date: 20150821
  Serious: Yes (Hospitalization, Other)
  Sender: FDA-Public Use
  Company Number: US-AMGEN-USASL2015026066

PATIENT
  Age: 71 Year
  Sex: Female

DRUGS (15)
  1. SYNTHROID [Concomitant]
     Active Substance: LEVOTHYROXINE SODIUM
     Dosage: UNK
  2. CALCIUM [Concomitant]
     Active Substance: CALCIUM
     Dosage: UNK
  3. SULINDAC. [Concomitant]
     Active Substance: SULINDAC
     Dosage: UNK
  4. ESTRADIOL TRANSDERMAL SYSTEM [Concomitant]
     Active Substance: ESTRADIOL
     Dosage: UNK
  5. ASPIRIN                            /00002701/ [Concomitant]
     Active Substance: ASPIRIN
     Dosage: UNK
  6. VITAMIN E [Concomitant]
     Active Substance: .ALPHA.-TOCOPHEROL
     Dosage: UNK
  7. VITAMIN C [Concomitant]
     Active Substance: ASCORBIC ACID
     Dosage: UNK
  8. KONSYL ORIGINAL FORMULA PSYLLIUM FIBER [Concomitant]
     Active Substance: PSYLLIUM HUSK
     Dosage: UNK
  9. VITAMIN D3 [Concomitant]
     Active Substance: CHOLECALCIFEROL
     Dosage: UNK
  10. LUTEIN                             /06447201/ [Concomitant]
     Dosage: UNK
  11. AMBIEN [Concomitant]
     Active Substance: ZOLPIDEM TARTRATE
     Dosage: UNK
  12. VITAMIN B12 [Concomitant]
     Active Substance: CYANOCOBALAMIN
     Dosage: UNK
  13. MAGNESIUM [Concomitant]
     Active Substance: MAGNESIUM
     Dosage: UNK
  14. ENBREL [Suspect]
     Active Substance: ETANERCEPT
     Indication: RHEUMATOID ARTHRITIS
     Dosage: 50 MG, QWK
     Route: 058
     Dates: start: 20050101
  15. VITAMIN B6 [Concomitant]
     Active Substance: PYRIDOXINE HYDROCHLORIDE
     Dosage: UNK

REACTIONS (9)
  - Enterovesical fistula [Recovered/Resolved]
  - Pneumonia [Recovered/Resolved]
  - Respiratory tract congestion [Recovered/Resolved]
  - Rhinorrhoea [Recovered/Resolved]
  - Musculoskeletal pain [Recovered/Resolved]
  - Cystitis [Recovered/Resolved]
  - Clostridium difficile infection [Recovered/Resolved]
  - Oropharyngeal pain [Recovered/Resolved]
  - Neck pain [Recovered/Resolved]

NARRATIVE: CASE EVENT DATE: 201404
